FAERS Safety Report 7166318-7 (Version None)
Quarter: 2010Q4

REPORT INFORMATION
  Report Type: 
  Country: None (occurrence: None)
  Receive Date: 20101203
  Receipt Date: 20101124
  Transmission Date: 20110411
  Serious: Yes (Death)
  Sender: FDA-Public Use
  Company Number: 201011046

PATIENT
  Sex: Female

DRUGS (1)
  1. XIAFLEX [Suspect]
     Indication: DUPUYTREN'S CONTRACTURE
     Dosage: INTRALESIONAL
     Route: 026
     Dates: start: 20101117, end: 20101117

REACTIONS (3)
  - ALCOHOL USE [None]
  - AORTIC DISSECTION [None]
  - CIRCULATORY COLLAPSE [None]
